FAERS Safety Report 9079925 (Version 1)
Quarter: 2013Q1

REPORT INFORMATION
  Report Type: Report from Study
  Country: US (occurrence: US)
  Receive Date: 20130130
  Receipt Date: 20130130
  Transmission Date: 20140127
  Serious: No
  Sender: FDA-Public Use
  Company Number: US-ABBOTT-12P-163-0975456-00

PATIENT
  Age: 34 Year
  Sex: Female
  Weight: 54.48 kg

DRUGS (18)
  1. HUMIRA 40 MG/ 0.8 ML PRE-FILLED SYRINGE [Suspect]
     Indication: CROHN^S DISEASE
     Route: 050
     Dates: start: 20120213, end: 20120415
  2. HUMIRA 40 MG/ 0.8 ML PRE-FILLED SYRINGE [Suspect]
     Route: 050
     Dates: start: 20120416, end: 20120818
  3. TEA [Concomitant]
     Indication: PRODUCT USED FOR UNKNOWN INDICATION
     Dosage: 1 SERVING
     Route: 048
     Dates: start: 20120104, end: 20120414
  4. TEA [Concomitant]
     Dosage: 1 SERVING
     Route: 048
     Dates: start: 20120415, end: 20120701
  5. TEA [Concomitant]
     Dosage: 1 SERVING
     Route: 048
     Dates: start: 20120702
  6. PRENATAL VITAMINS [Concomitant]
     Indication: PRODUCT USED FOR UNKNOWN INDICATION
     Dosage: 1 PILL DAILY
     Route: 048
     Dates: start: 20120104, end: 20120830
  7. PRENATAL VITAMINS [Concomitant]
     Route: 048
     Dates: start: 20120701
  8. PREDNISONE [Concomitant]
     Indication: CROHN^S DISEASE
     Route: 048
     Dates: start: 20120213, end: 20120301
  9. PREDNISONE [Concomitant]
     Route: 048
     Dates: start: 20120302, end: 20120316
  10. PREDNISONE [Concomitant]
     Route: 048
     Dates: start: 20120317, end: 20120401
  11. PREDNISONE [Concomitant]
     Route: 048
     Dates: start: 20120402, end: 20120525
  12. PREDNISONE [Concomitant]
     Route: 048
     Dates: start: 20120526, end: 20120814
  13. TYLENOL [Concomitant]
     Indication: PAIN
     Route: 048
     Dates: start: 20120104
  14. TYLENOL [Concomitant]
     Indication: HEADACHE
  15. IMODIUM A-D [Concomitant]
     Indication: PRODUCT USED FOR UNKNOWN INDICATION
     Route: 048
     Dates: start: 20120104, end: 20120209
  16. IMODIUM A-D [Concomitant]
     Route: 048
     Dates: start: 20120515, end: 20120830
  17. VITAMIN D [Concomitant]
     Indication: PRODUCT USED FOR UNKNOWN INDICATION
     Route: 048
     Dates: start: 20120701
  18. VITAMIN B12 [Concomitant]
     Indication: ILL-DEFINED DISORDER
     Route: 048
     Dates: start: 20120701

REACTIONS (2)
  - Clostridium difficile infection [Recovered/Resolved]
  - Glucose tolerance test abnormal [Unknown]
